FAERS Safety Report 6237221-1 (Version None)
Quarter: 2009Q2

REPORT INFORMATION
  Report Type: 
  Country: None (occurrence: None)
  Receive Date: 20090619
  Receipt Date: 20090618
  Transmission Date: 20091009
  Serious: Yes (Hospitalization, Other)
  Sender: FDA-Public Use
  Company Number: ES-BRISTOL-MYERS SQUIBB COMPANY-14669105

PATIENT
  Age: 45 Year
  Sex: Female

DRUGS (6)
  1. SINEMET CR [Suspect]
     Indication: PARKINSON'S DISEASE
     Dosage: SINEMET-PLUS 25/100; 0.5 DF
     Route: 048
     Dates: start: 20090420, end: 20090502
  2. SINEMET [Concomitant]
     Indication: PARKINSON'S DISEASE
     Route: 048
     Dates: start: 20000101
  3. SINEMET [Concomitant]
     Indication: PARKINSON'S DISEASE
     Route: 048
     Dates: start: 20000101
  4. AMANTADINE HCL [Concomitant]
     Indication: PARKINSON'S DISEASE
     Route: 048
     Dates: start: 20000101
  5. MIRAPEX [Concomitant]
     Indication: PARKINSON'S DISEASE
     Route: 048
     Dates: start: 20000101
  6. SEROQUEL [Concomitant]
     Route: 048
     Dates: start: 20070101

REACTIONS (2)
  - ACUTE PSYCHOSIS [None]
  - PARKINSON'S DISEASE [None]
